FAERS Safety Report 14820211 (Version 1)
Quarter: 2018Q2

REPORT INFORMATION
  Report Type: Spontaneous
  Country: US (occurrence: US)
  Receive Date: 20180427
  Receipt Date: 20180427
  Transmission Date: 20180711
  Serious: Yes (Other)
  Sender: FDA-Public Use
  Company Number: US-AMGEN-USASP2018054695

PATIENT
  Age: 79 Year
  Sex: Female

DRUGS (1)
  1. PROLIA [Suspect]
     Active Substance: DENOSUMAB
     Indication: THYROID DISORDER
     Dosage: 60 MG, Q6MO
     Route: 065
     Dates: start: 2016

REACTIONS (4)
  - Spinal operation [Unknown]
  - Pain [Unknown]
  - Drug dose omission [Unknown]
  - Off label use [Unknown]
